FAERS Safety Report 23199531 (Version 1)
Quarter: 2023Q4

REPORT INFORMATION
  Report Type: Spontaneous
  Country: US (occurrence: US)
  Receive Date: 20231117
  Receipt Date: 20231117
  Transmission Date: 20240110
  Serious: No
  Sender: FDA-Public Use
  Company Number: US-PPDUS-2023ST002670

PATIENT
  Age: 59 Year
  Sex: Female

DRUGS (26)
  1. ORSERDU [Suspect]
     Active Substance: ELACESTRANT
     Indication: Product used for unknown indication
     Route: 048
     Dates: start: 20230301
  2. XOFIGO [Concomitant]
     Active Substance: RADIUM RA-223 DICHLORIDE
     Indication: Product used for unknown indication
     Route: 065
  3. ARMOUR THYROID [Concomitant]
     Active Substance: THYROID, PORCINE
  4. CELEBREX [Concomitant]
     Active Substance: CELECOXIB
  5. CLONAZEPAM [Concomitant]
     Active Substance: CLONAZEPAM
  6. COENZYME Q10 [Concomitant]
     Active Substance: DIETARY SUPPLEMENT\UBIDECARENONE
  7. CYCLOBENZAPRINE [Concomitant]
     Active Substance: CYCLOBENZAPRINE
  8. DEXAMETHASONE [Concomitant]
     Active Substance: DEXAMETHASONE
  9. DOXEPIN [Concomitant]
     Active Substance: DOXEPIN
  10. GABAPENTIN [Concomitant]
     Active Substance: GABAPENTIN
  11. LEXAPRO [Concomitant]
     Active Substance: ESCITALOPRAM OXALATE
  12. MAGNESIUM [Concomitant]
     Active Substance: MAGNESIUM
  13. METHADONE [Concomitant]
     Active Substance: METHADONE HYDROCHLORIDE
  14. MIRALAX [Concomitant]
     Active Substance: POLYETHYLENE GLYCOL 3350
  15. MOVANTIK [Concomitant]
     Active Substance: NALOXEGOL OXALATE
  16. VITAMINS [Concomitant]
     Active Substance: VITAMINS
  17. PENTOXIFYLLINE [Concomitant]
     Active Substance: PENTOXIFYLLINE
  18. PRISTIQ EXTENDED-RELEASE [Concomitant]
     Active Substance: DESVENLAFAXINE SUCCINATE
  19. QUERCETIN [Concomitant]
     Active Substance: QUERCETIN
  20. RA ALPHA-LIPOIC ACID [Concomitant]
  21. SENNA [Concomitant]
     Active Substance: SENNA LEAF\SENNOSIDES\SENNOSIDES A AND B
  22. BIOTIN [Concomitant]
     Active Substance: BIOTIN
  23. TYLENOL [Concomitant]
     Active Substance: ACETAMINOPHEN
  24. TYLENOL WITH CODEINE [Concomitant]
     Active Substance: ACETAMINOPHEN\CODEINE PHOSPHATE
  25. VITAMIN C [Concomitant]
     Active Substance: ASCORBIC ACID
  26. XGEVA [Concomitant]
     Active Substance: DENOSUMAB

REACTIONS (2)
  - Constipation [Not Recovered/Not Resolved]
  - Bone pain [Not Recovered/Not Resolved]
